FAERS Safety Report 13441908 (Version 1)
Quarter: 2017Q2

REPORT INFORMATION
  Report Type: Spontaneous
  Country: CH (occurrence: CH)
  Receive Date: 20170413
  Receipt Date: 20170413
  Transmission Date: 20170830
  Serious: Yes (Hospitalization)
  Sender: FDA-Public Use
  Company Number: PHHY2017CH050561

PATIENT
  Age: 16 Year
  Sex: Female

DRUGS (4)
  1. TAVANIC [Suspect]
     Active Substance: LEVOFLOXACIN
     Indication: HELICOBACTER GASTRITIS
     Dosage: 500 MG, BID
     Route: 065
     Dates: start: 20161118, end: 20161122
  2. AMOXICILLIN SANDOZ [Suspect]
     Active Substance: AMOXICILLIN
     Indication: HELICOBACTER GASTRITIS
     Dosage: 1000 MG, BID
     Route: 065
     Dates: start: 20161118, end: 20161122
  3. MYCOBUTIN [Suspect]
     Active Substance: RIFABUTIN
     Indication: HELICOBACTER GASTRITIS
     Dosage: 150 MG, BID
     Route: 065
     Dates: start: 20161118, end: 20161122
  4. ESOMEP [Suspect]
     Active Substance: ESOMEPRAZOLE
     Indication: HELICOBACTER GASTRITIS
     Dosage: 40 MG, BID
     Route: 065
     Dates: start: 20161118, end: 20161125

REACTIONS (5)
  - Pancytopenia [Recovering/Resolving]
  - Pyrexia [Recovered/Resolved]
  - Thrombocytopenia [Recovering/Resolving]
  - Leukopenia [Recovering/Resolving]
  - Neutrophil count decreased [Recovering/Resolving]

NARRATIVE: CASE EVENT DATE: 20161122
